FAERS Safety Report 4728129-9 (Version None)
Quarter: 2005Q3

REPORT INFORMATION
  Report Type: 
  Country: None (occurrence: None)
  Receive Date: 20050727
  Receipt Date: 20050719
  Transmission Date: 20060218
  Serious: Yes (Disabling, Other)
  Sender: FDA-Public Use
  Company Number: 2005099842

PATIENT
  Age: 51 Year
  Sex: Female
  Weight: 110 kg

DRUGS (6)
  1. LIPITOR [Suspect]
     Indication: BLOOD CHOLESTEROL INCREASED
     Dosage: 20 MG (20 MG, 1 IN 1 D), ORAL
     Route: 048
     Dates: end: 20050701
  2. KARVEA (IRBESARTAN) [Concomitant]
  3. RAMIPRIL [Concomitant]
  4. NATRILIX (INDAPAMIDE) [Concomitant]
  5. INSULIN [Concomitant]
  6. DIAFORMIN (METFORMIN HYDROCHLORIDE) [Concomitant]

REACTIONS (6)
  - ABASIA [None]
  - CRYING [None]
  - DISCOMFORT [None]
  - DYSSTASIA [None]
  - PAIN IN EXTREMITY [None]
  - PARAESTHESIA [None]
